FAERS Safety Report 9632703 (Version 1)
Quarter: 2013Q4

REPORT INFORMATION
  Report Type: Report from Study
  Country: CA (occurrence: CA)
  Receive Date: 20131018
  Receipt Date: 20131018
  Transmission Date: 20140711
  Serious: Yes (Other)
  Sender: FDA-Public Use
  Company Number: CA-ABBVIE-13P-028-1158238-00

PATIENT
  Age: 68 Year
  Sex: Male

DRUGS (1)
  1. HUMIRA [Suspect]
     Indication: RHEUMATOID ARTHRITIS
     Route: 058
     Dates: start: 20110617, end: 201309

REACTIONS (3)
  - Haematuria [Not Recovered/Not Resolved]
  - Bladder cancer [Not Recovered/Not Resolved]
  - Prostate induration [Not Recovered/Not Resolved]
